FAERS Safety Report 19732122 (Version 1)
Quarter: 2021Q3

REPORT INFORMATION
  Report Type: Spontaneous
  Country: US (occurrence: US)
  Receive Date: 20210819
  Receipt Date: 20210819
  Transmission Date: 20211014
  Serious: Yes (Hospitalization)
  Sender: FDA-Public Use
  Company Number: None

PATIENT
  Sex: Female

DRUGS (1)
  1. MAKENA [Suspect]
     Active Substance: HYDROXYPROGESTERONE CAPROATE
     Indication: PREMATURE LABOUR
     Dosage: ?          OTHER STRENGTH: 275MG/1.1M ;?
     Route: 058
     Dates: start: 20210429, end: 20210429

REACTIONS (3)
  - Hypersensitivity [None]
  - Pain [None]
  - Erythema [None]

NARRATIVE: CASE EVENT DATE: 2021
